FAERS Safety Report 20804848 (Version 2)
Quarter: 2022Q2

REPORT INFORMATION
  Report Type: Report from Study
  Country: CA (occurrence: CA)
  Receive Date: 20220509
  Receipt Date: 20220531
  Transmission Date: 20220720
  Serious: Yes (Other)
  Sender: FDA-Public Use
  Company Number: CA-ABBVIE-22K-028-4381628-00

PATIENT
  Sex: Female

DRUGS (1)
  1. HUMIRA [Suspect]
     Active Substance: ADALIMUMAB
     Indication: Hidradenitis
     Route: 058
     Dates: start: 20210330

REACTIONS (3)
  - Ovarian cyst [Recovered/Resolved]
  - Gait inability [Unknown]
  - Pain [Unknown]

NARRATIVE: CASE EVENT DATE: 20220101
